FAERS Safety Report 5778485-8 (Version None)
Quarter: 2008Q2

REPORT INFORMATION
  Report Type: 
  Country: None (occurrence: None)
  Receive Date: 20080619
  Receipt Date: 20080310
  Transmission Date: 20081010
  Serious: Yes (Congenital Anomaly)
  Sender: FDA-Public Use
  Company Number: CH-BAYER-200820379GPV

PATIENT

DRUGS (5)
  1. ASPIRIN [Suspect]
     Indication: HYPERTENSION
     Route: 064
     Dates: end: 20080121
  2. LISITRIL / LISINOPRIL [Suspect]
     Indication: HYPERTENSION
     Route: 064
  3. COSAAR PLUS / HYDROCHLOROTHIAZIDE, LOSARTAN POTASSIUM 100 MG [Suspect]
     Indication: HYPERTENSION
     Route: 064
  4. ATENOLOL [Suspect]
     Indication: HYPERTENSION
     Route: 064
     Dates: end: 20080121
  5. ALDACTONE [Suspect]
     Indication: HYPERTENSION
     Route: 064
     Dates: end: 20080121

REACTIONS (1)
  - RENAL FAILURE [None]
